FAERS Safety Report 5500947-9 (Version None)
Quarter: 2007Q4

REPORT INFORMATION
  Report Type: 
  Country: None (occurrence: None)
  Receive Date: 20071029
  Receipt Date: 20071024
  Transmission Date: 20080405
  Serious: Yes (Life-Threatening, Hospitalization, Other)
  Sender: FDA-Public Use
  Company Number: PHEH2007US13210

PATIENT
  Age: 81 Year
  Sex: Male
  Weight: 69.387 kg

DRUGS (7)
  1. RECLAST [Suspect]
     Indication: OSTEITIS DEFORMANS
     Dosage: 5 MG ONCE
     Route: 042
     Dates: start: 20071001
  2. ALTACE [Concomitant]
     Dosage: 5MG QD
  3. LIPITOR [Concomitant]
     Dosage: 20MG QD
  4. ASACOL [Concomitant]
     Dosage: 1000MG TID
  5. ASCORBIC ACID [Concomitant]
     Dosage: 500MG QD
  6. ASPIRIN [Concomitant]
     Dosage: 81MG QD
  7. FLEMEX [Concomitant]
     Dosage: 0.4MG QD

REACTIONS (18)
  - ASTHENIA [None]
  - BLOOD ALKALINE PHOSPHATASE DECREASED [None]
  - BLOOD CREATINE PHOSPHOKINASE INCREASED [None]
  - CHILLS [None]
  - CONFUSIONAL STATE [None]
  - DIASTOLIC DYSFUNCTION [None]
  - DIZZINESS [None]
  - DYSPNOEA [None]
  - ELECTROCARDIOGRAM T WAVE ABNORMAL [None]
  - HYPERHIDROSIS [None]
  - HYPOCALCAEMIA [None]
  - HYPOTENSION [None]
  - MITRAL VALVE PROLAPSE [None]
  - MYALGIA [None]
  - MYOCARDIAL INFARCTION [None]
  - MYOCARDIAL ISCHAEMIA [None]
  - TROPONIN INCREASED [None]
  - VENTRICULAR DYSKINESIA [None]
